FAERS Safety Report 7815441-X (Version None)
Quarter: 2011Q4

REPORT INFORMATION
  Report Type: 
  Country: None (occurrence: None)
  Receive Date: 20111014
  Receipt Date: 20111004
  Transmission Date: 20120403
  Serious: Yes (Hospitalization, Other)
  Sender: FDA-Public Use
  Company Number: PHHY2011NL89254

PATIENT
  Age: 49 Year
  Sex: Male

DRUGS (19)
  1. ENALAPRIL MALEATE [Concomitant]
     Dosage: 10 MG, QD
  2. HALOPERIDOL [Concomitant]
  3. METOPROLOL TARTRATE [Suspect]
     Indication: HYPERTENSION
     Dosage: 50 MG, QD
  4. CLOZAPINE [Concomitant]
     Dosage: 500 MG, QD
  5. ESOMEPRAZOLE SODIUM [Concomitant]
     Dosage: 40 MG, QD
  6. CLOZAPINE [Concomitant]
     Indication: SCHIZOPHRENIA, PARANOID TYPE
     Dosage: 325 MG, QD
  7. METOPROLOL TARTRATE [Suspect]
     Dosage: 100 MG, QD
  8. TEMAZEPAM [Concomitant]
     Dosage: 10 MG, QD
  9. ANTIHISTAMINICS [Concomitant]
  10. HYDROCHLOROTHIAZIDE [Suspect]
     Dosage: UNK UKN, UNK
  11. AMLODIPINE [Concomitant]
     Dosage: 5 MG, QD
  12. SIMVASTATIN [Concomitant]
     Dosage: 40 MG, QD
  13. METOPROLOL TARTRATE [Suspect]
     Dosage: 200 MG, QD
  14. CLOZAPINE [Concomitant]
     Dosage: 250 MG, QD
  15. BARNIDIPINE [Concomitant]
  16. CARBASALATE CALCIUM [Concomitant]
     Dosage: 100 MG, QD
  17. OXAZEPAM [Concomitant]
     Dosage: 20 MG, QD
  18. DIPYRIDAMOLE [Concomitant]
     Dosage: 200 MG, QD
  19. QUETIAPINE [Concomitant]
     Dosage: 75 MG, QD

REACTIONS (6)
  - ANGIOEDEMA [None]
  - LACUNAR INFARCTION [None]
  - HYPERTENSIVE CRISIS [None]
  - RENAL FAILURE [None]
  - HEMIPARESIS [None]
  - DRUG INEFFECTIVE [None]
